FAERS Safety Report 9190510 (Version 1)
Quarter: 2013Q1

REPORT INFORMATION
  Report Type: Report from Study
  Country: US (occurrence: US)
  Receive Date: 20130326
  Receipt Date: 20130326
  Transmission Date: 20140127
  Serious: Yes (Hospitalization)
  Sender: FDA-Public Use
  Company Number: US-PFIZER INC-2013045282

PATIENT
  Age: 71 Year
  Sex: Female
  Weight: 61.8 kg

DRUGS (11)
  1. FLUOROURACIL [Suspect]
     Indication: COLORECTAL CANCER METASTATIC
     Dosage: 400 MG/M2, BOLUS IV ON DAY 1 EVERY 14 DAYS
     Route: 040
     Dates: start: 20121218
  2. FLUOROURACIL [Suspect]
     Dosage: 2400 MG/M2, ON DAYS 1 AND 2 EVERY 14 DAYS
     Route: 042
     Dates: start: 20121218, end: 20130116
  3. IRINOTECAN HCL [Suspect]
     Indication: COLORECTAL CANCER METASTATIC
     Dosage: 180 MG/M2, DAY 1 EVERY 14 DAYS
     Route: 042
     Dates: start: 20121218, end: 20130116
  4. BLINDED THERAPY [Suspect]
     Indication: COLORECTAL CANCER METASTATIC
     Dosage: UNK
     Dates: start: 20121218, end: 20130116
  5. FOLINIC ACID [Suspect]
     Indication: COLORECTAL CANCER METASTATIC
     Dosage: 400 MG/M2, DAY 1 EVERY 14 DAYS
     Route: 042
     Dates: start: 20121218, end: 20130116
  6. HYDROCHLOROTHIAZIDE [Concomitant]
     Dosage: UNK
     Dates: start: 20120410
  7. PREMARIN [Concomitant]
     Dosage: UNK
     Dates: start: 20120410
  8. CALCIUM CARBONATE [Concomitant]
     Dosage: UNK
     Dates: start: 20120410
  9. POTASSIUM [Concomitant]
     Dosage: UNK
     Dates: start: 20120410
  10. PERCOCET [Concomitant]
     Dosage: UNK
     Dates: start: 20121220
  11. OXYCONTIN [Concomitant]
     Dosage: UNK
     Dates: start: 20130109

REACTIONS (2)
  - Tumour lysis syndrome [Recovered/Resolved with Sequelae]
  - Asthenia [Not Recovered/Not Resolved]
